FAERS Safety Report 4601737-1 (Version None)
Quarter: 2005Q1

REPORT INFORMATION
  Report Type: 
  Country: None (occurrence: None)
  Receive Date: 20050131
  Receipt Date: 20041222
  Transmission Date: 20050727
  Serious: No
  Sender: FDA-Public Use
  Company Number: 200419772US

PATIENT
  Sex: Female

DRUGS (3)
  1. KETEK [Suspect]
     Indication: LARYNGITIS
     Dosage: ONCE PO
     Route: 048
  2. KETEK [Suspect]
     Indication: PHARYNGITIS
     Dosage: ONCE PO
     Route: 048
  3. KETEK [Suspect]
     Indication: TONSILLITIS
     Dosage: ONCE PO
     Route: 048

REACTIONS (1)
  - VOMITING [None]
